FAERS Safety Report 9735308 (Version 1)
Quarter: 2013Q4

REPORT INFORMATION
  Report Type: Spontaneous
  Country: US (occurrence: US)
  Receive Date: 20131206
  Receipt Date: 20131206
  Transmission Date: 20140711
  Serious: Yes (Hospitalization)
  Sender: FDA-Public Use
  Company Number: US-MYLANLABS-2013S1026753

PATIENT
  Age: 59 Year
  Sex: Female

DRUGS (4)
  1. FENTANYL [Suspect]
     Indication: PROCEDURAL PAIN
     Dosage: 50UG FOLLOWED BY AN ADDITIONAL 100UG
     Route: 042
  2. FENTANYL [Interacting]
     Indication: PROCEDURAL PAIN
     Dosage: 100UG
     Route: 042
  3. DULOXETINE [Interacting]
     Route: 065
  4. TRAZODONE [Interacting]
     Route: 065

REACTIONS (2)
  - Serotonin syndrome [Recovering/Resolving]
  - Drug interaction [Recovering/Resolving]
